FAERS Safety Report 24106381 (Version 1)
Quarter: 2024Q3

REPORT INFORMATION
  Report Type: Spontaneous
  Country: US (occurrence: US)
  Receive Date: 20240717
  Receipt Date: 20240717
  Transmission Date: 20241016
  Serious: No
  Sender: Phathom Pharmaceuticals
  Company Number: US-PHATHOM PHARMACEUTICALS INC.-2024PHT00444

PATIENT
  Age: 64 Year
  Sex: Female
  Weight: 77.098 kg

DRUGS (7)
  1. VOQUEZNA [Suspect]
     Active Substance: VONOPRAZAN FUMARATE
     Indication: Gastrooesophageal reflux disease
     Dosage: 1 TABLETS, 1X/DAY
     Route: 048
     Dates: start: 202405, end: 202406
  2. MAGNESIUM SULFATE [Concomitant]
     Active Substance: MAGNESIUM SULFATE\MAGNESIUM SULFATE HEPTAHYDRATE
  3. SOTALOL [Concomitant]
     Active Substance: SOTALOL
  4. PEPCID [Concomitant]
     Active Substance: FAMOTIDINE
  5. ATORVASTATIN [Concomitant]
     Active Substance: ATORVASTATIN
  6. BACLOFEN [Concomitant]
     Active Substance: BACLOFEN
  7. LINZESS [Concomitant]
     Active Substance: LINACLOTIDE

REACTIONS (2)
  - Therapeutic product effect decreased [Recovered/Resolved]
  - Gastrooesophageal reflux disease [Recovered/Resolved]

NARRATIVE: CASE EVENT DATE: 20240519
